FAERS Safety Report 9262328 (Version 1)
Quarter: 2013Q2

REPORT INFORMATION
  Report Type: Spontaneous
  Country: JP (occurrence: None)
  Receive Date: 20130425
  Receipt Date: 20130425
  Transmission Date: 20140414
  Serious: Yes (Hospitalization)
  Sender: FDA-Public Use
  Company Number: VAL_02291_2013

PATIENT
  Age: 61 Year
  Sex: Male

DRUGS (1)
  1. CARBAMAZEPINE (CARBAMAZEPINE) CHEWABLE TABLET [Suspect]
     Indication: PRODUCT USED FOR UNKNOWN INDICATION

REACTIONS (5)
  - Hypogammaglobulinaemia [None]
  - Sinobronchitis [None]
  - Heart rate increased [None]
  - Lymphopenia [None]
  - Haemophilus test positive [None]
